FAERS Safety Report 25555403 (Version 3)
Quarter: 2025Q3

REPORT INFORMATION
  Report Type: Spontaneous
  Country: EU (occurrence: EU)
  Receive Date: 20250715
  Receipt Date: 20250819
  Transmission Date: 20251021
  Serious: Yes (Hospitalization, Other)
  Sender: MYLAN
  Company Number: EU-MYLANLABS-2025M1059086

PATIENT
  Sex: Male

DRUGS (16)
  1. CLOZARIL [Suspect]
     Active Substance: CLOZAPINE
     Indication: Schizophrenia
     Dosage: BID (400 MILLIGRAM AS 150 MILLIGRAM IN THE MORNING AND 250 MILLIGRAM AT NIGHT)
     Dates: start: 20150413
  2. CLOZARIL [Suspect]
     Active Substance: CLOZAPINE
     Dosage: BID (400 MILLIGRAM AS 150 MILLIGRAM IN THE MORNING AND 250 MILLIGRAM AT NIGHT)
     Dates: start: 20150413
  3. CLOZARIL [Suspect]
     Active Substance: CLOZAPINE
     Dosage: BID (400 MILLIGRAM AS 150 MILLIGRAM IN THE MORNING AND 250 MILLIGRAM AT NIGHT)
     Route: 048
     Dates: start: 20150413
  4. CLOZARIL [Suspect]
     Active Substance: CLOZAPINE
     Dosage: BID (400 MILLIGRAM AS 150 MILLIGRAM IN THE MORNING AND 250 MILLIGRAM AT NIGHT)
     Route: 048
     Dates: start: 20150413
  5. CLOZARIL [Suspect]
     Active Substance: CLOZAPINE
     Dosage: BID, (400 MG AT NIGHT AND 200 MG IN MORNING)
  6. CLOZARIL [Suspect]
     Active Substance: CLOZAPINE
     Dosage: BID, (400 MG AT NIGHT AND 200 MG IN MORNING)
  7. CLOZARIL [Suspect]
     Active Substance: CLOZAPINE
     Dosage: BID, (400 MG AT NIGHT AND 200 MG IN MORNING)
     Route: 048
  8. CLOZARIL [Suspect]
     Active Substance: CLOZAPINE
     Dosage: BID, (400 MG AT NIGHT AND 200 MG IN MORNING)
     Route: 048
  9. LITHIUM [Concomitant]
     Active Substance: LITHIUM
     Dosage: 700 MILLIGRAM, PM, (AT NIGHT)
  10. LITHIUM [Concomitant]
     Active Substance: LITHIUM
     Dosage: 700 MILLIGRAM, PM, (AT NIGHT)
     Route: 065
  11. LITHIUM [Concomitant]
     Active Substance: LITHIUM
     Dosage: 700 MILLIGRAM, PM, (AT NIGHT)
     Route: 065
  12. LITHIUM [Concomitant]
     Active Substance: LITHIUM
     Dosage: 700 MILLIGRAM, PM, (AT NIGHT)
  13. VALPROATE SODIUM [Concomitant]
     Active Substance: VALPROATE SODIUM
     Dosage: 600 MILLIGRAM, PM, (AT NIGHT FOR A WEEK)
  14. VALPROATE SODIUM [Concomitant]
     Active Substance: VALPROATE SODIUM
     Dosage: 600 MILLIGRAM, PM, (AT NIGHT FOR A WEEK)
     Route: 065
  15. VALPROATE SODIUM [Concomitant]
     Active Substance: VALPROATE SODIUM
     Dosage: 600 MILLIGRAM, PM, (AT NIGHT FOR A WEEK)
     Route: 065
  16. VALPROATE SODIUM [Concomitant]
     Active Substance: VALPROATE SODIUM
     Dosage: 600 MILLIGRAM, PM, (AT NIGHT FOR A WEEK)

REACTIONS (3)
  - Schizophrenia [Recovering/Resolving]
  - Psychotic disorder [Recovered/Resolved]
  - Treatment noncompliance [Unknown]
